FAERS Safety Report 23283136 (Version 1)
Quarter: 2023Q4

REPORT INFORMATION
  Report Type: Spontaneous
  Country: US (occurrence: None)
  Receive Date: 20231211
  Receipt Date: 20231211
  Transmission Date: 20240109
  Serious: Yes (Other)
  Sender: FDA-Public Use
  Company Number: None

PATIENT
  Sex: Male

DRUGS (3)
  1. ENVARSUS XR [Suspect]
     Active Substance: TACROLIMUS
     Indication: Renal transplant
     Dosage: OTHER FREQUENCY : EVERY MORNING ;?
     Route: 048
     Dates: start: 20190125
  2. ENVARSUS XR [Suspect]
     Active Substance: TACROLIMUS
     Dosage: OTHER FREQUENCY : EVERY MORNING;?
     Route: 048
  3. ACITRETIN [Concomitant]

REACTIONS (2)
  - Bacterial infection [None]
  - Localised infection [None]
